FAERS Safety Report 13127303 (Version 1)
Quarter: 2017Q1

REPORT INFORMATION
  Report Type: Spontaneous
  Country: US (occurrence: US)
  Receive Date: 20170118
  Receipt Date: 20170118
  Transmission Date: 20170428
  Serious: No
  Sender: FDA-Public Use
  Company Number: US-ROCHE-1816412

PATIENT
  Sex: Male

DRUGS (2)
  1. RITUXAN [Suspect]
     Active Substance: RITUXIMAB
     Indication: EYE OPERATION
  2. RITUXAN [Suspect]
     Active Substance: RITUXIMAB
     Indication: EYE DISORDER
     Dosage: 4 INFUSIONS
     Route: 042
     Dates: start: 201512, end: 201601

REACTIONS (3)
  - Malaise [Unknown]
  - Pollakiuria [Unknown]
  - Fatigue [Not Recovered/Not Resolved]
